FAERS Safety Report 8951216 (Version 3)
Quarter: 2013Q2

REPORT INFORMATION
  Report Type: Spontaneous
  Country: US (occurrence: None)
  Receive Date: 20121116
  Receipt Date: 20130426
  Transmission Date: 20140414
  Serious: Yes (Hospitalization, Other)
  Sender: FDA-Public Use
  Company Number: 2012033914

PATIENT
  Sex: Female
  Weight: 76.2 kg

DRUGS (9)
  1. BERINERT [Suspect]
     Indication: HEREDITARY ANGIOEDEMA
     Route: 042
     Dates: start: 20130508
  2. BERINERT [Suspect]
     Route: 042
     Dates: start: 20130508
  3. KALBITOR [Suspect]
  4. FIRAZYR [Suspect]
  5. SYNTHROID (LEVOTHYROXINE SODIUM) [Concomitant]
  6. LEXAPRO (ESCITALOPRAM OXALATE) [Concomitant]
  7. BENADRYL (DIPHENHYDRAMINE HYDROCHLORIDE) [Concomitant]
  8. ZANTAC (RANITIDINE HYDROCHLORIDE) [Concomitant]
  9. PREDNISONE (PREDNISONE) [Concomitant]

REACTIONS (4)
  - Renal function test abnormal [None]
  - Condition aggravated [None]
  - Vision blurred [None]
  - Hereditary angioedema [None]
